FAERS Safety Report 5623242-6 (Version None)
Quarter: 2008Q1

REPORT INFORMATION
  Report Type: 
  Country: None (occurrence: None)
  Receive Date: 20080212
  Receipt Date: 20080131
  Transmission Date: 20080703
  Serious: Yes (Death, Hospitalization, Disabling)
  Sender: FDA-Public Use
  Company Number: GB-WYE-H02488408

PATIENT
  Age: 81 Year
  Sex: Male

DRUGS (8)
  1. AMIODARONE HCL [Suspect]
     Indication: VENTRICULAR TACHYCARDIA
     Route: 048
     Dates: start: 20070101, end: 20070101
  2. ATORVASTATIN CALCIUM [Concomitant]
     Dosage: UNKNOWN
     Route: 048
     Dates: start: 20010101
  3. SPIRONOLACTONE [Concomitant]
     Dosage: UNKNOWN
     Route: 048
     Dates: start: 20071004
  4. ISOSORBIDE MONONITRATE [Concomitant]
     Dosage: UNKNOWN
     Route: 048
     Dates: start: 20071119
  5. LANSOPRAZOLE [Concomitant]
     Dosage: UNKNOWN
     Route: 048
     Dates: start: 20071016
  6. RAMIPRIL [Concomitant]
     Dosage: UNKNOWN
     Route: 048
     Dates: start: 20071004
  7. ACETYLSALICYLIC ACID SRT [Concomitant]
     Dosage: UNKNOWN
     Route: 048
     Dates: start: 20010101
  8. FUROSEMIDE [Concomitant]
     Dosage: UNKNOWN
     Route: 048
     Dates: start: 20071004

REACTIONS (5)
  - ALVEOLITIS [None]
  - BALANCE DISORDER [None]
  - CARDIAC FAILURE [None]
  - PNEUMONIA [None]
  - TREMOR [None]
